FAERS Safety Report 13812487 (Version 6)
Quarter: 2018Q3

REPORT INFORMATION
  Report Type: Report from Study
  Country: US (occurrence: US)
  Receive Date: 20170728
  Receipt Date: 20180719
  Transmission Date: 20181010
  Serious: No
  Sender: FDA-Public Use
  Company Number: US-AMGEN-USASL2017095409

PATIENT
  Age: 63 Year
  Sex: Male

DRUGS (3)
  1. REPATHA [Suspect]
     Active Substance: EVOLOCUMAB
     Indication: HYPERLIPIDAEMIA
     Dosage: 140 MG, Q2WK
     Route: 058
     Dates: start: 20170609
  2. REPATHA [Suspect]
     Active Substance: EVOLOCUMAB
     Indication: HYPERCHOLESTEROLAEMIA
  3. ZOCOR [Concomitant]
     Active Substance: SIMVASTATIN
     Dosage: UNK

REACTIONS (9)
  - Nausea [Unknown]
  - Injection site pain [Not Recovered/Not Resolved]
  - Irritable bowel syndrome [Recovered/Resolved]
  - Abdominal discomfort [Unknown]
  - Rhinorrhoea [Unknown]
  - Confusional state [Unknown]
  - Dizziness [Unknown]
  - Injection site haemorrhage [Unknown]
  - Acne [Unknown]

NARRATIVE: CASE EVENT DATE: 2017
